FAERS Safety Report 12489364 (Version 1)
Quarter: 2016Q2

REPORT INFORMATION
  Report Type: Spontaneous
  Country: US (occurrence: US)
  Receive Date: 20160622
  Receipt Date: 20160622
  Transmission Date: 20160815
  Serious: No
  Sender: FDA-Public Use
  Company Number: US-BAYER-2016-121014

PATIENT
  Age: 20 Month
  Sex: Female

DRUGS (1)
  1. CHILDREN CLARITIN ALLERGY [Suspect]
     Active Substance: LORATADINE
     Indication: NASAL CONGESTION
     Dosage: UNK UNK, ONCE

REACTIONS (3)
  - Expired product administered [None]
  - Failure of child resistant mechanism for pharmaceutical product [None]
  - Accidental exposure to product by child [None]

NARRATIVE: CASE EVENT DATE: 20160618
